FAERS Safety Report 6372295-9 (Version None)
Quarter: 2009Q3

REPORT INFORMATION
  Report Type: 
  Country: None (occurrence: None)
  Receive Date: 20090924
  Receipt Date: 20090911
  Transmission Date: 20100115
  Serious: Yes (Hospitalization)
  Sender: FDA-Public Use
  Company Number: US-CELGENEUS-163-20785-09091031

PATIENT
  Sex: Female

DRUGS (4)
  1. THALOMID [Suspect]
     Indication: MULTIPLE MYELOMA
     Route: 048
     Dates: start: 20090801, end: 20090813
  2. DEXAMETHASONE [Concomitant]
     Indication: MULTIPLE MYELOMA
     Route: 065
  3. VELCADE [Concomitant]
     Indication: MULTIPLE MYELOMA
     Route: 065
  4. CYTOXAN [Concomitant]
     Indication: MULTIPLE MYELOMA
     Route: 065

REACTIONS (5)
  - ANAEMIA [None]
  - CHEST DISCOMFORT [None]
  - LUNG INFILTRATION [None]
  - PALPITATIONS [None]
  - PYREXIA [None]
